FAERS Safety Report 5291248-5 (Version None)
Quarter: 2007Q2

REPORT INFORMATION
  Report Type: 
  Country: None (occurrence: None)
  Receive Date: 20070409
  Receipt Date: 20070403
  Transmission Date: 20071010
  Serious: Yes (Other)
  Sender: FDA-Public Use
  Company Number: JP-PFIZER INC-2007023735

PATIENT
  Age: 50 Year
  Sex: Male

DRUGS (2)
  1. ATORVASTATIN CALCIUM [Suspect]
     Route: 048
  2. VALSARTAN [Concomitant]
     Route: 048

REACTIONS (2)
  - ANXIETY [None]
  - DELUSION [None]
